FAERS Safety Report 18839158 (Version 3)
Quarter: 2022Q1

REPORT INFORMATION
  Report Type: Spontaneous
  Country: IN (occurrence: IN)
  Receive Date: 20210203
  Receipt Date: 20220105
  Transmission Date: 20220424
  Serious: Yes (Hospitalization, Other)
  Sender: FDA-Public Use
  Company Number: IN-MACLEODS PHARMACEUTICALS US LTD-MAC2021029750

PATIENT
  Age: 26 Year
  Sex: Male
  Weight: 61 kg

DRUGS (11)
  1. SILDENAFIL CITRATE [Interacting]
     Active Substance: SILDENAFIL CITRATE
     Indication: Sexual dysfunction
     Dosage: 2000 MG IN 3 TO 4 DIVIDED DOSES
     Route: 048
  2. SILDENAFIL CITRATE [Interacting]
     Active Substance: SILDENAFIL CITRATE
     Indication: Euphoric mood
     Dosage: 1 TO 2 TABLETS OF 50 MG SILDENAFIL INITIALLY
     Route: 048
  3. SILDENAFIL CITRATE [Interacting]
     Active Substance: SILDENAFIL CITRATE
     Indication: Feeling of relaxation
     Dosage: 1 TO 2 TABLETS OF 50 MG SILDENAFIL INITIALLY
     Route: 048
  4. SILDENAFIL CITRATE [Interacting]
     Active Substance: SILDENAFIL CITRATE
     Dosage: 10 TO 12 TABLETS PER DAY IN 3 TO 4 DIVIDED DOSES
     Route: 048
  5. SILDENAFIL CITRATE [Interacting]
     Active Substance: SILDENAFIL CITRATE
     Dosage: 10 TO 12 TABLETS PER DAY IN 3 TO 4 DIVIDED DOSES
     Route: 048
  6. ALPRAZOLAM [Interacting]
     Active Substance: ALPRAZOLAM
     Dosage: 40 TO 50 TABLETS OF 0.5 MG ALPRAZOLAM (20-25 MG) IN DIVIDED DOSES OVER THE NEXT FEW MONTHS
  7. ALPRAZOLAM [Interacting]
     Active Substance: ALPRAZOLAM
     Dosage: 40 TO 50 TABLETS OF 0.5 MG ALPRAZOLAM (20-25 MG) IN DIVIDED DOSES OVER THE NEXT FEW MONTHS
  8. ALPRAZOLAM [Interacting]
     Active Substance: ALPRAZOLAM
     Dosage: UNK
  9. TRAMADOL [Interacting]
     Active Substance: TRAMADOL
     Dosage: 25 TO 30 TABLETS OF 50 MG TRAMADOL (1250 -1500 MG) IN DIVIDED DOSES OVER THE NEXT FEW MONTHS
  10. TRAMADOL [Interacting]
     Active Substance: TRAMADOL
     Dosage: 25 TO 30 TABLETS OF 50 MG TRAMADOL (1250 -1500 MG) IN DIVIDED DOSES OVER THE NEXT FEW MONTHS
  11. TRAMADOL [Interacting]
     Active Substance: TRAMADOL
     Dosage: UNK

REACTIONS (7)
  - Drug abuse [Unknown]
  - Drug interaction [Unknown]
  - Feeling of relaxation [Unknown]
  - Euphoric mood [Unknown]
  - Drug use disorder [Unknown]
  - Headache [Unknown]
  - Vision blurred [Unknown]
